FAERS Safety Report 4541631-8 (Version None)
Quarter: 2004Q4

REPORT INFORMATION
  Report Type: 
  Country: None (occurrence: None)
  Receive Date: 20041227
  Receipt Date: 20041213
  Transmission Date: 20050328
  Serious: Yes (Death, Life-Threatening)
  Sender: FDA-Public Use
  Company Number: 2004110268

PATIENT
  Age: 24 Year
  Sex: Male
  Weight: 70 kg

DRUGS (2)
  1. XANAX [Suspect]
     Indication: INTENTIONAL OVERDOSE
     Dosage: 1.5 MG (0.5 MG, 1 IN 3 D), ORAL
     Route: 048
  2. OLANZAPINE [Suspect]
     Indication: ILL-DEFINED DISORDER
     Dosage: 10 MG (10 MG, INTERVAL: EVERY DAY), ORAL
     Route: 048

REACTIONS (13)
  - ANTIPSYCHOTIC DRUG LEVEL ABOVE THERAPEUTIC [None]
  - BRADYCARDIA [None]
  - CARDIAC ARREST [None]
  - CARDIO-RESPIRATORY ARREST [None]
  - CARDIOPULMONARY FAILURE [None]
  - FLATULENCE [None]
  - GLASGOW COMA SCALE ABNORMAL [None]
  - HYPERKALAEMIA [None]
  - ILEUS [None]
  - POISONING DELIBERATE [None]
  - RENAL FAILURE [None]
  - RHABDOMYOLYSIS [None]
  - VOMITING [None]
